FAERS Safety Report 9174630 (Version 1)
Quarter: 2013Q1

REPORT INFORMATION
  Report Type: Spontaneous
  Country: AR (occurrence: AR)
  Receive Date: 20130320
  Receipt Date: 20130320
  Transmission Date: 20140127
  Serious: Yes (Hospitalization, Other)
  Sender: FDA-Public Use
  Company Number: PHHY2013AR025989

PATIENT
  Sex: Male

DRUGS (2)
  1. RASILEZ [Suspect]
     Indication: HYPERTENSION
     Dosage: 1 DF, DAILY
     Route: 048
     Dates: start: 201109, end: 201109
  2. DIOVAN [Concomitant]
     Dosage: 160 UKN, UNK

REACTIONS (3)
  - Arthritis bacterial [Recovered/Resolved]
  - Diabetes mellitus [Unknown]
  - Accident [Unknown]
